FAERS Safety Report 6214353-5 (Version None)
Quarter: 2009Q2

REPORT INFORMATION
  Report Type: 
  Country: None (occurrence: None)
  Receive Date: 20090602
  Receipt Date: 20090527
  Transmission Date: 20091009
  Serious: Yes (Death)
  Sender: FDA-Public Use
  Company Number: 2009JP003123

PATIENT
  Age: 5 Year
  Sex: Female

DRUGS (9)
  1. PROGRAF [Suspect]
     Indication: CORD BLOOD TRANSPLANT THERAPY
  2. CYCLOSPORINE [Suspect]
     Indication: CORD BLOOD TRANSPLANT THERAPY
     Dosage: CONTINUOUS
  3. METHYLPREDNISOLONE [Concomitant]
  4. IMMUNE GLOBULIN (HUMAN) [Concomitant]
  5. ETOPOSIDE [Concomitant]
  6. VINCRISTINE [Concomitant]
  7. DACTINOMYCIN [Concomitant]
  8. CYCLOPHOSPHAMIDE [Concomitant]
  9. DIURETICS [Concomitant]

REACTIONS (10)
  - ABULIA [None]
  - CEREBRAL ATROPHY [None]
  - EPILEPSY [None]
  - HYPERTENSION [None]
  - LOSS OF CONSCIOUSNESS [None]
  - MENTAL STATUS CHANGES [None]
  - MUTISM [None]
  - RENAL IMPAIRMENT [None]
  - SUDDEN DEATH [None]
  - VOMITING [None]
